FAERS Safety Report 13582655 (Version 1)
Quarter: 2017Q2

REPORT INFORMATION
  Report Type: Spontaneous
  Country: JP (occurrence: JP)
  Receive Date: 20170525
  Receipt Date: 20170525
  Transmission Date: 20170830
  Serious: Yes (Death)
  Sender: FDA-Public Use
  Company Number: JP-JNJFOC-20170202089

PATIENT
  Sex: Male
  Weight: 50 kg

DRUGS (2)
  1. IMBRUVICA [Suspect]
     Active Substance: IBRUTINIB
     Indication: MANTLE CELL LYMPHOMA
     Route: 048
     Dates: start: 20170126, end: 201704
  2. IMBRUVICA [Suspect]
     Active Substance: IBRUTINIB
     Indication: MANTLE CELL LYMPHOMA
     Route: 048
     Dates: start: 201704

REACTIONS (3)
  - Malaise [Recovered/Resolved]
  - Lymphocyte count increased [Unknown]
  - Death [Fatal]

NARRATIVE: CASE EVENT DATE: 201701
